FAERS Safety Report 8504744-1 (Version None)
Quarter: 2012Q3

REPORT INFORMATION
  Report Type: 
  Country: None (occurrence: None)
  Receive Date: 20120712
  Receipt Date: 20120709
  Transmission Date: 20120928
  Serious: Yes (Hospitalization)
  Sender: FDA-Public Use
  Company Number: AU-AMGEN-AUSSP2012042551

PATIENT
  Sex: Female
  Weight: 44.6 kg

DRUGS (4)
  1. METOPROLOL TARTRATE [Concomitant]
  2. NORVASC [Concomitant]
  3. PROLIA [Suspect]
     Indication: OSTEOPOROSIS
     Dosage: 60 MG, Q12MO
     Dates: start: 20111026, end: 20111026
  4. ASPIRIN [Concomitant]

REACTIONS (4)
  - HYPONATRAEMIA [None]
  - MALAISE [None]
  - URINARY TRACT INFECTION [None]
  - HYPOCALCAEMIA [None]
